FAERS Safety Report 9431819 (Version 1)
Quarter: 2013Q3

REPORT INFORMATION
  Report Type: Report from Study
  Country: BR (occurrence: BR)
  Receive Date: 20130731
  Receipt Date: 20130731
  Transmission Date: 20140515
  Serious: Yes (Other)
  Sender: FDA-Public Use
  Company Number: PHHY2013BR080125

PATIENT
  Sex: Female

DRUGS (1)
  1. DIOVAN TRIPLE [Suspect]
     Indication: HYPERTENSION
     Dosage: 1 DF, UNK (VALSARTAN 160MG, AMLODIPINE 5MG, HYDROCHLOROTHIAZIDE 12.5 MG)
     Dates: start: 20120731

REACTIONS (1)
  - Heart rate decreased [Recovered/Resolved]
